APPROVED DRUG PRODUCT: LISDEXAMFETAMINE DIMESYLATE
Active Ingredient: LISDEXAMFETAMINE DIMESYLATE
Strength: 60MG
Dosage Form/Route: CAPSULE;ORAL
Application: A214484 | Product #006 | TE Code: AB
Applicant: SUN PHARMACEUTICAL INDUSTRIES INC
Approved: Aug 25, 2023 | RLD: No | RS: No | Type: RX